FAERS Safety Report 8790506 (Version 1)
Quarter: 2012Q4

REPORT INFORMATION
  Report Type: Spontaneous
  Country: US (occurrence: None)
  Receive Date: 20120912
  Receipt Date: 20120912
  Transmission Date: 20130627
  Serious: No
  Sender: FDA-Public Use
  Company Number: None

PATIENT
  Age: 31 Year
  Sex: Female
  Weight: 90.72 kg

DRUGS (1)
  1. NUVARING [Suspect]
     Indication: BIRTH CONTROL
     Route: 067
     Dates: start: 20120906, end: 20120911

REACTIONS (9)
  - Dysgeusia [None]
  - Vulvovaginal discomfort [None]
  - Vulvovaginal pain [None]
  - Vulvovaginal burning sensation [None]
  - Fluid retention [None]
  - Weight increased [None]
  - Painful respiration [None]
  - Pollakiuria [None]
  - Vulvovaginal discomfort [None]
